FAERS Safety Report 16607664 (Version 2)
Quarter: 2019Q3

REPORT INFORMATION
  Report Type: Spontaneous
  Country: US (occurrence: US)
  Receive Date: 20190722
  Receipt Date: 20190724
  Transmission Date: 20191004
  Serious: Yes (Other)
  Sender: FDA-Public Use
  Company Number: US-BAYER-2019-135771

PATIENT
  Sex: Female

DRUGS (1)
  1. KYLEENA [Suspect]
     Active Substance: LEVONORGESTREL
     Indication: CONTRACEPTION
     Dosage: 17.5 MCG/24HR, CONT
     Route: 015
     Dates: start: 2018

REACTIONS (5)
  - Drug ineffective [None]
  - Menorrhagia [None]
  - Device physical property issue [None]
  - Ectopic pregnancy with contraceptive device [None]
  - Abdominal pain lower [None]

NARRATIVE: CASE EVENT DATE: 2018
